FAERS Safety Report 17246198 (Version 9)
Quarter: 2021Q4

REPORT INFORMATION
  Report Type: Spontaneous
  Country: US (occurrence: US)
  Receive Date: 20200108
  Receipt Date: 20211015
  Transmission Date: 20220303
  Serious: Yes (Hospitalization, Other)
  Sender: FDA-Public Use
  Company Number: US-GILEAD-2020-0445085

PATIENT
  Age: 55 Year
  Sex: Male
  Weight: 73.65 kg

DRUGS (71)
  1. ATRIPLA [Suspect]
     Active Substance: EFAVIRENZ\EMTRICITABINE\TENOFOVIR DISOPROXIL FUMARATE
     Indication: HIV infection
     Dosage: UNK
     Route: 048
     Dates: start: 200707, end: 201311
  2. ATRIPLA [Suspect]
     Active Substance: EFAVIRENZ\EMTRICITABINE\TENOFOVIR DISOPROXIL FUMARATE
     Dosage: UNK
     Route: 048
     Dates: start: 20060815, end: 20131101
  3. ATRIPLA [Suspect]
     Active Substance: EFAVIRENZ\EMTRICITABINE\TENOFOVIR DISOPROXIL FUMARATE
     Dosage: UNK
     Route: 048
     Dates: start: 20060808, end: 20131125
  4. ATRIPLA [Suspect]
     Active Substance: EFAVIRENZ\EMTRICITABINE\TENOFOVIR DISOPROXIL FUMARATE
     Dosage: UNK
     Route: 048
     Dates: start: 20060808, end: 201308
  5. ATRIPLA [Suspect]
     Active Substance: EFAVIRENZ\EMTRICITABINE\TENOFOVIR DISOPROXIL FUMARATE
     Dosage: UNK
     Route: 048
     Dates: start: 20130909, end: 20131125
  6. COMPLERA [Suspect]
     Active Substance: EMTRICITABINE\RILPIVIRINE HYDROCHLORIDE\TENOFOVIR DISOPROXIL FUMARATE
     Indication: HIV infection
     Dosage: UNK
     Route: 048
     Dates: start: 20131209, end: 201602
  7. COMPLERA [Suspect]
     Active Substance: EMTRICITABINE\RILPIVIRINE HYDROCHLORIDE\TENOFOVIR DISOPROXIL FUMARATE
     Dosage: UNK
     Route: 048
     Dates: start: 20131125, end: 20140604
  8. COMPLERA [Suspect]
     Active Substance: EMTRICITABINE\RILPIVIRINE HYDROCHLORIDE\TENOFOVIR DISOPROXIL FUMARATE
     Dosage: UNK
     Route: 048
     Dates: start: 20131125, end: 20140729
  9. COMPLERA [Suspect]
     Active Substance: EMTRICITABINE\RILPIVIRINE HYDROCHLORIDE\TENOFOVIR DISOPROXIL FUMARATE
     Dosage: UNK
     Route: 048
     Dates: start: 20140604, end: 20140729
  10. TRUVADA [Suspect]
     Active Substance: EMTRICITABINE\TENOFOVIR DISOPROXIL FUMARATE
     Indication: HIV infection
     Dosage: UNK
     Route: 065
     Dates: start: 20140729, end: 20150325
  11. EMTRIVA [Concomitant]
     Active Substance: EMTRICITABINE
  12. HARVONI [Concomitant]
     Active Substance: LEDIPASVIR\SOFOSBUVIR
  13. ACETAMINOPHEN [Concomitant]
     Active Substance: ACETAMINOPHEN
  14. AMITRIPTYLINE [Concomitant]
     Active Substance: AMITRIPTYLINE
  15. AMOXICILLIN [Concomitant]
     Active Substance: AMOXICILLIN
  16. BACTRIM [Concomitant]
     Active Substance: SULFAMETHOXAZOLE\TRIMETHOPRIM
  17. OMEPRAZOLE [Concomitant]
     Active Substance: OMEPRAZOLE
  18. PREDNISONE [Concomitant]
     Active Substance: PREDNISONE
  19. VANCOMYCIN [Concomitant]
     Active Substance: VANCOMYCIN
  20. WARFARIN [Concomitant]
     Active Substance: WARFARIN
  21. EPZICOM [Concomitant]
     Active Substance: ABACAVIR SULFATE\LAMIVUDINE
  22. KALETRA [Concomitant]
     Active Substance: LOPINAVIR\RITONAVIR
  23. TIVICAY [Concomitant]
     Active Substance: DOLUTEGRAVIR SODIUM
  24. TRIUMEQ [Concomitant]
     Active Substance: ABACAVIR SULFATE\DOLUTEGRAVIR SODIUM\LAMIVUDINE
  25. ZIAGEN [Concomitant]
     Active Substance: ABACAVIR SULFATE
  26. ATIVAN [Concomitant]
     Active Substance: LORAZEPAM
  27. CLONAZEPAM [Concomitant]
     Active Substance: CLONAZEPAM
  28. LISINOPRIL [Concomitant]
     Active Substance: LISINOPRIL
  29. METOPROLOL [Concomitant]
     Active Substance: METOPROLOL
  30. HYDRALAZINE [Concomitant]
     Active Substance: HYDRALAZINE HYDROCHLORIDE
  31. IBUPROFEN [Concomitant]
     Active Substance: IBUPROFEN
  32. ZOLOFT [Concomitant]
     Active Substance: SERTRALINE HYDROCHLORIDE
  33. PIROXICAM [Concomitant]
     Active Substance: PIROXICAM
  34. VANCOMYCIN [Concomitant]
     Active Substance: VANCOMYCIN
  35. CLINDAMYCIN [Concomitant]
     Active Substance: CLINDAMYCIN
  36. GABAPENTIN [Concomitant]
     Active Substance: GABAPENTIN
  37. GUAIFENESIN [Concomitant]
     Active Substance: GUAIFENESIN
  38. SPIRONOLACTONE [Concomitant]
     Active Substance: SPIRONOLACTONE
  39. PANCRELIPASE [Concomitant]
     Active Substance: PANCRELIPASE
  40. BISACODYL [Concomitant]
     Active Substance: BISACODYL
  41. AZITHROMYCIN ANHYDROUS [Concomitant]
     Active Substance: AZITHROMYCIN ANHYDROUS
  42. SEROQUEL [Concomitant]
     Active Substance: QUETIAPINE FUMARATE
  43. CETIRIZINE [Concomitant]
     Active Substance: CETIRIZINE HYDROCHLORIDE
  44. RIFADIN [Concomitant]
     Active Substance: RIFAMPIN
  45. SILDENAFIL [Concomitant]
     Active Substance: SILDENAFIL
  46. ONDANSETRON [Concomitant]
     Active Substance: ONDANSETRON
  47. ROXICODONE [Concomitant]
     Active Substance: OXYCODONE HYDROCHLORIDE
  48. TRAMADOL [Concomitant]
     Active Substance: TRAMADOL
  49. DESIPRAMINE [Concomitant]
     Active Substance: DESIPRAMINE
  50. NALOXONE [Concomitant]
     Active Substance: NALOXONE
  51. HYDROMORPHONE [Concomitant]
     Active Substance: HYDROMORPHONE
  52. HYDROCODONE BITARTRATE AND ACETAMINOPHEN [Concomitant]
     Active Substance: ACETAMINOPHEN\HYDROCODONE BITARTRATE
  53. PROCHLORPERAZINE [Concomitant]
     Active Substance: PROCHLORPERAZINE
  54. XIFAXAN [Concomitant]
     Active Substance: RIFAXIMIN
  55. ESZOPICLONE [Concomitant]
     Active Substance: ESZOPICLONE
  56. CYANOCOBALAMIN [Concomitant]
     Active Substance: CYANOCOBALAMIN
  57. FOLIC ACID [Concomitant]
     Active Substance: FOLIC ACID
  58. MARINOL [Concomitant]
     Active Substance: DRONABINOL
  59. MAGNESIUM OXIDE [Concomitant]
     Active Substance: MAGNESIUM OXIDE
  60. MORPHINE [Concomitant]
     Active Substance: MORPHINE
  61. FERROUS GLUCONATE [Concomitant]
     Active Substance: FERROUS GLUCONATE
  62. SENNOSIDES [Concomitant]
     Active Substance: SENNOSIDES
  63. LOPERAMIDE [Concomitant]
     Active Substance: LOPERAMIDE
  64. TRIAMCINOLONE ACETONIDE [Concomitant]
     Active Substance: TRIAMCINOLONE ACETONIDE
  65. HYDROXYZINE [Concomitant]
     Active Substance: HYDROXYZINE HYDROCHLORIDE
  66. DEXTROMETHORPHAN\GUAIFENESIN [Concomitant]
     Active Substance: DEXTROMETHORPHAN\GUAIFENESIN
  67. CAMPHOR [Concomitant]
     Active Substance: CAMPHOR
  68. FLUCONAZOLE [Concomitant]
     Active Substance: FLUCONAZOLE
  69. DOCUSATE [Concomitant]
     Active Substance: DOCUSATE
  70. AMLODIPINE [Concomitant]
     Active Substance: AMLODIPINE BESYLATE
  71. ALPRAZOLAM [Concomitant]
     Active Substance: ALPRAZOLAM

REACTIONS (13)
  - End stage renal disease [Not Recovered/Not Resolved]
  - Chronic kidney disease [Not Recovered/Not Resolved]
  - Chronic kidney disease [Not Recovered/Not Resolved]
  - Acute kidney injury [Recovered/Resolved]
  - Renal failure [Unknown]
  - Tooth loss [Not Recovered/Not Resolved]
  - Tooth loss [Not Recovered/Not Resolved]
  - Bone density decreased [Unknown]
  - Anhedonia [Unknown]
  - Emotional distress [Unknown]
  - Economic problem [Unknown]
  - Anxiety [Unknown]
  - Pain [Unknown]

NARRATIVE: CASE EVENT DATE: 20150101
